FAERS Safety Report 20755395 (Version 1)
Quarter: 2022Q2

REPORT INFORMATION
  Report Type: Spontaneous
  Country: TR (occurrence: TR)
  Receive Date: 20220427
  Receipt Date: 20220427
  Transmission Date: 20220721
  Serious: Yes (Other)
  Sender: FDA-Public Use
  Company Number: TR-SUN PHARMACEUTICAL INDUSTRIES LTD-2022R1-334170

PATIENT
  Age: 12 Month
  Sex: Female

DRUGS (3)
  1. HYDROXYZINE [Suspect]
     Active Substance: HYDROXYZINE HYDROCHLORIDE
     Indication: Urticaria
     Dosage: 1 MILLIGRAM/KILOGRAM, DAILY
     Route: 065
  2. METHYLPREDNISOLONE [Suspect]
     Active Substance: METHYLPREDNISOLONE
     Indication: Urticaria
     Dosage: 1 MILLIGRAM/KILOGRAM, DAILY
     Route: 065
  3. PHENIRAMINE [Suspect]
     Active Substance: PHENIRAMINE
     Indication: Urticaria
     Dosage: UNK
     Route: 065

REACTIONS (1)
  - Drug resistance [Unknown]
